FAERS Safety Report 6509337-3 (Version None)
Quarter: 2009Q4

REPORT INFORMATION
  Report Type: 
  Country: None (occurrence: None)
  Receive Date: 20091218
  Receipt Date: 20091218
  Transmission Date: 20100525
  Serious: Yes (Life-Threatening, Hospitalization)
  Sender: FDA-Public Use
  Company Number: None

PATIENT
  Age: 30 Year
  Sex: Female
  Weight: 81.6475 kg

DRUGS (2)
  1. YASMIN [Suspect]
     Indication: ACNE
     Dosage: 1 PILL PER DAY PO
     Route: 048
     Dates: start: 20020101, end: 20070307
  2. YASMIN [Suspect]
     Indication: CONTRACEPTION
     Dosage: 1 PILL PER DAY PO
     Route: 048
     Dates: start: 20020101, end: 20070307

REACTIONS (11)
  - APPARENT DEATH [None]
  - CEREBROVASCULAR ACCIDENT [None]
  - EAR PAIN [None]
  - INFLUENZA [None]
  - LABYRINTHITIS [None]
  - MALAISE [None]
  - MIGRAINE [None]
  - MUSCULOSKELETAL STIFFNESS [None]
  - SUPERIOR SAGITTAL SINUS THROMBOSIS [None]
  - VISION BLURRED [None]
  - VOMITING [None]
